FAERS Safety Report 25230328 (Version 1)
Quarter: 2025Q2

REPORT INFORMATION
  Report Type: Spontaneous
  Country: US (occurrence: US)
  Receive Date: 20250423
  Receipt Date: 20250423
  Transmission Date: 20250717
  Serious: Yes (Other)
  Sender: CSL BEHRING
  Company Number: US-BEH-2025202716

PATIENT
  Age: 70 Year
  Sex: Female

DRUGS (7)
  1. HUMAN IMMUNOGLOBULIN G [Suspect]
     Active Substance: HUMAN IMMUNOGLOBULIN G
     Indication: Asthma
     Route: 042
  2. BENRALIZUMAB [Concomitant]
     Active Substance: BENRALIZUMAB
     Indication: Asthma
     Route: 065
  3. FEXOFENADINE [Concomitant]
     Active Substance: FEXOFENADINE HYDROCHLORIDE
  4. INSULIN NOS [Concomitant]
     Active Substance: INSULIN NOS
  5. FLUTICASONE PROPIONATE [Concomitant]
     Active Substance: FLUTICASONE PROPIONATE
  6. LEVALBUTEROL [Concomitant]
     Active Substance: LEVALBUTEROL
  7. OMEPRAZOLE [Concomitant]
     Active Substance: OMEPRAZOLE

REACTIONS (6)
  - Oedematous pancreatitis [Unknown]
  - Off label use [Unknown]
  - Biliary tract disorder [Unknown]
  - Abdominal pain upper [Unknown]
  - Abdominal distension [Unknown]
  - Blood pressure abnormal [Unknown]
